FAERS Safety Report 7753623-6 (Version None)
Quarter: 2011Q3

REPORT INFORMATION
  Report Type: 
  Country: None (occurrence: None)
  Receive Date: 20110915
  Receipt Date: 20110905
  Transmission Date: 20111222
  Serious: Yes (Other)
  Sender: FDA-Public Use
  Company Number: FR-VIIV HEALTHCARE LIMITED-B0691820A

PATIENT
  Sex: Male
  Weight: 82 kg

DRUGS (5)
  1. NOVORAPID [Concomitant]
     Indication: DIABETES MELLITUS
     Route: 058
  2. TRUVADA [Suspect]
     Indication: HIV INFECTION
     Dates: start: 20051201
  3. MARAVIROC [Suspect]
     Indication: HIV INFECTION
     Dosage: 300MG TWICE PER DAY
     Dates: start: 20080313
  4. AMARYL [Concomitant]
     Indication: DIABETES MELLITUS
     Route: 048
  5. INSULATARD NPH HUMAN [Concomitant]
     Indication: DIABETES MELLITUS
     Route: 058

REACTIONS (1)
  - HODGKIN'S DISEASE [None]
